FAERS Safety Report 6993978-3 (Version None)
Quarter: 2010Q3

REPORT INFORMATION
  Report Type: 
  Country: None (occurrence: None)
  Receive Date: 20100917
  Receipt Date: 20070823
  Transmission Date: 20110219
  Serious: Yes (Other)
  Sender: FDA-Public Use
  Company Number: US-ASTRAZENECA-2006UW11196

PATIENT
  Age: 20358 Day
  Sex: Female
  Weight: 102.1 kg

DRUGS (9)
  1. SEROQUEL [Suspect]
     Indication: SLEEP DISORDER
     Route: 048
  2. SEROQUEL [Suspect]
     Dosage: 300-900 MG
     Route: 048
     Dates: start: 20020102
  3. ZYPREXA [Suspect]
  4. WELLBUTRIN SR/WELLBUTRIN [Concomitant]
     Indication: SEXUAL DYSFUNCTION
     Dosage: 150-200 MG
     Dates: start: 20020827
  5. WELLBUTRIN SR/WELLBUTRIN [Concomitant]
     Indication: ASTHENIA
     Dosage: 150-200 MG
     Dates: start: 20020827
  6. GLUCOVANCE [Concomitant]
     Dosage: 5/500 2 TAB BID TWICE A DAY
     Route: 048
     Dates: start: 20021202
  7. RISPERDAL [Concomitant]
     Dosage: 1-10 MG
     Dates: start: 20020102
  8. VALIUM [Concomitant]
     Dosage: 10-40 MG
     Dates: start: 20020102
  9. ZOLOFT [Concomitant]
     Dosage: 100-250 MG
     Dates: start: 20020102

REACTIONS (3)
  - DIABETES MELLITUS [None]
  - DIABETES MELLITUS INADEQUATE CONTROL [None]
  - TYPE 2 DIABETES MELLITUS [None]
